FAERS Safety Report 9633589 (Version 2)
Quarter: 2013Q4

REPORT INFORMATION
  Report Type: Spontaneous
  Country: GB (occurrence: GB)
  Receive Date: 20131021
  Receipt Date: 20131119
  Transmission Date: 20140711
  Serious: Yes (Other)
  Sender: FDA-Public Use
  Company Number: PHFR2013GB005862

PATIENT
  Age: 38 Year
  Sex: Male
  Weight: 98 kg

DRUGS (6)
  1. CLOZARIL [Suspect]
     Indication: SCHIZOPHRENIA
     Dosage: UNK
     Route: 048
     Dates: start: 20080815
  2. CLOZARIL [Suspect]
     Dosage: 150 MG, UNK
     Route: 048
  3. CLOZARIL [Suspect]
     Dosage: 325 MG, UNK
     Route: 048
  4. ARIPIPRAZOLE [Concomitant]
     Dosage: 25 MG, UNK
     Route: 048
  5. DEPAKOTE [Concomitant]
     Dosage: 500 MG, UNK
  6. DEPAKOTE [Concomitant]
     Dosage: 1000 MG, UNK
     Route: 048

REACTIONS (2)
  - VIIth nerve paralysis [Recovered/Resolved]
  - Cerebrovascular accident [Unknown]
